FAERS Safety Report 8064597-5 (Version None)
Quarter: 2012Q1

REPORT INFORMATION
  Report Type: 
  Country: None (occurrence: None)
  Receive Date: 20120123
  Receipt Date: 20120112
  Transmission Date: 20120608
  Serious: Yes (Death)
  Sender: FDA-Public Use
  Company Number: FR-MERCK-1201USA02679

PATIENT
  Age: 59 Year
  Sex: Female

DRUGS (3)
  1. CANCIDAS [Suspect]
     Indication: SYSTEMIC CANDIDA
     Route: 051
  2. VORICONAZOLE [Suspect]
     Indication: ASPERGILLOSIS
     Route: 065
  3. AMPHOTERICIN B AND CHOLESTEROL AND DISTEAROYLPHOSPHATIDYLGLYCEROL AND [Suspect]
     Indication: ASPERGILLOSIS
     Route: 065

REACTIONS (1)
  - DRUG INEFFECTIVE [None]
